FAERS Safety Report 14738231 (Version 2)
Quarter: 2022Q4

REPORT INFORMATION
  Report Type: Report from Study
  Country: US (occurrence: US)
  Receive Date: 20180409
  Receipt Date: 20221014
  Transmission Date: 20230113
  Serious: Yes (Hospitalization)
  Sender: FDA-Public Use
  Company Number: US-VERTEX PHARMACEUTICALS-2018-001400

PATIENT
  Age: 6 Year
  Sex: Female
  Weight: 20 kg

DRUGS (13)
  1. ORKAMBI [Suspect]
     Active Substance: IVACAFTOR\LUMACAFTOR
     Indication: Cystic fibrosis
     Dosage: 2 TABLETS (100MG/125 MG), BID
     Route: 048
     Dates: start: 20170707
  2. VENTOLIN HFA [Concomitant]
     Active Substance: ALBUTEROL SULFATE
     Indication: Cough
     Dosage: 2 DOSAGE FORM, EVERY HOUR HOURS, PRN, INHALER
     Route: 055
     Dates: start: 20170705
  3. VENTOLIN HFA [Concomitant]
     Active Substance: ALBUTEROL SULFATE
     Indication: Dyspnoea
  4. QVAR [Concomitant]
     Active Substance: BECLOMETHASONE DIPROPIONATE
     Dosage: 2 DOSAGE FORM, BID, INHALER
     Route: 055
     Dates: start: 20170327
  5. ZYRTEC [Concomitant]
     Active Substance: CETIRIZINE HYDROCHLORIDE
     Dosage: 1 TABLET  (5MG), QD
     Route: 048
     Dates: start: 20170727
  6. CYPROHEPTADINE [Concomitant]
     Active Substance: CYPROHEPTADINE
     Dosage: 3.75 MILLILITER, TID, SYRUP
     Route: 048
     Dates: start: 20170612
  7. PULMOZYME [Concomitant]
     Active Substance: DORNASE ALFA
     Dosage: 2.5 MG, BID, NEBULISER SOLUTION
     Route: 055
     Dates: start: 20160718
  8. FLONASE [Concomitant]
     Active Substance: FLUTICASONE PROPIONATE
     Dosage: 1 DOSAGE FORM, QD
     Route: 045
     Dates: start: 20170727
  9. CREON [Concomitant]
     Active Substance: PANCRELIPASE AMYLASE\PANCRELIPASE LIPASE\PANCRELIPASE PROTEASE
     Dosage: 6 DF WITH MEALS AND 3 WITH SNACKS, CAPSULE
     Dates: start: 20170510
  10. MIRALAX [Concomitant]
     Active Substance: POLYETHYLENE GLYCOL 3350
     Dosage: 1/2 CAPFUL WITH 4 OUNCES OF WATER OR CLEAR JUICE, QD
     Dates: start: 20170510
  11. MIRALAX [Concomitant]
     Active Substance: POLYETHYLENE GLYCOL 3350
     Dosage: INCREASED TO 3 TIMES
  12. SODIUM CHLORIDE [Concomitant]
     Active Substance: SODIUM CHLORIDE
     Dosage: 4 MILLILITER (7%), BID, NEBULISER SOLUTION
     Route: 055
     Dates: start: 20170727
  13. ACTIGALL [Concomitant]
     Active Substance: URSODIOL
     Dosage: 1 TABLET (250MG), QD
     Route: 048
     Dates: start: 20170516

REACTIONS (4)
  - Faecaloma [Recovered/Resolved]
  - Headache [Recovering/Resolving]
  - Abdominal pain [Unknown]
  - Vomiting [Recovered/Resolved]

NARRATIVE: CASE EVENT DATE: 20171201
